FAERS Safety Report 4572146-9 (Version None)
Quarter: 2005Q1

REPORT INFORMATION
  Report Type: 
  Country: None (occurrence: None)
  Receive Date: 20050202
  Receipt Date: 20050113
  Transmission Date: 20050727
  Serious: No
  Sender: FDA-Public Use
  Company Number: USA050188275

PATIENT
  Age: 28 Year
  Sex: Male

DRUGS (3)
  1. STRATTERA [Suspect]
     Indication: ATTENTION DEFICIT/HYPERACTIVITY DISORDER
     Dosage: 80 MG DAY
     Dates: start: 20041001
  2. HUMALOG [Concomitant]
  3. CONCERTA [Concomitant]

REACTIONS (4)
  - ADVERSE EVENT [None]
  - BILIRUBIN CONJUGATED INCREASED [None]
  - BLOOD BILIRUBIN UNCONJUGATED INCREASED [None]
  - DECREASED APPETITE [None]
